FAERS Safety Report 15855795 (Version 15)
Quarter: 2020Q3

REPORT INFORMATION
  Report Type: Spontaneous
  Country: CA (occurrence: CA)
  Receive Date: 20190122
  Receipt Date: 20200917
  Transmission Date: 20201102
  Serious: Yes (Other)
  Sender: FDA-Public Use
  Company Number: CA-ABBVIE-19K-028-2634312-00

PATIENT
  Sex: Female

DRUGS (52)
  1. HUMIRA [Suspect]
     Active Substance: ADALIMUMAB
     Indication: RHEUMATOID ARTHRITIS
     Dosage: CYCLICAL
     Route: 058
  2. ARAVA [Suspect]
     Active Substance: LEFLUNOMIDE
     Route: 048
  3. HYDROXYCHLOROQUINE [Suspect]
     Active Substance: HYDROXYCHLOROQUINE
     Indication: RHEUMATOID ARTHRITIS
     Route: 065
  4. METHOTREXATE SODIUM. [Suspect]
     Active Substance: METHOTREXATE SODIUM
     Route: 030
  5. REMICADE [Suspect]
     Active Substance: INFLIXIMAB
     Indication: RHEUMATOID ARTHRITIS
     Route: 042
  6. METHOTREXATE. [Suspect]
     Active Substance: METHOTREXATE
     Route: 058
  7. METHOTREXATE. [Suspect]
     Active Substance: METHOTREXATE
     Route: 065
  8. METHOTREXATE. [Suspect]
     Active Substance: METHOTREXATE
     Route: 030
  9. RITUXIMAB. [Suspect]
     Active Substance: RITUXIMAB
     Indication: RHEUMATOID ARTHRITIS
     Dosage: CYCLICAL
     Route: 041
  10. ARAVA [Suspect]
     Active Substance: LEFLUNOMIDE
     Route: 048
  11. ARAVA [Suspect]
     Active Substance: LEFLUNOMIDE
     Route: 048
  12. REMICADE [Suspect]
     Active Substance: INFLIXIMAB
     Route: 042
  13. REMICADE [Suspect]
     Active Substance: INFLIXIMAB
     Route: 065
  14. REMICADE [Suspect]
     Active Substance: INFLIXIMAB
     Route: 042
  15. ARAVA [Suspect]
     Active Substance: LEFLUNOMIDE
     Route: 048
  16. ARAVA [Suspect]
     Active Substance: LEFLUNOMIDE
     Route: 048
  17. ARAVA [Suspect]
     Active Substance: LEFLUNOMIDE
     Route: 048
  18. ARAVA [Suspect]
     Active Substance: LEFLUNOMIDE
     Route: 048
  19. ENBREL [Suspect]
     Active Substance: ETANERCEPT
     Route: 065
  20. METHOTREXATE SODIUM. [Suspect]
     Active Substance: METHOTREXATE SODIUM
     Route: 058
  21. RITUXAN [Suspect]
     Active Substance: RITUXIMAB
     Route: 042
  22. METHOTREXATE. [Suspect]
     Active Substance: METHOTREXATE
     Indication: RHEUMATOID ARTHRITIS
     Route: 065
  23. HYDROXYCHLOROQUINE SULFATE. [Suspect]
     Active Substance: HYDROXYCHLOROQUINE SULFATE
     Indication: RHEUMATOID ARTHRITIS
     Route: 048
  24. ARAVA [Suspect]
     Active Substance: LEFLUNOMIDE
     Dosage: FOR 3 MONTHS
     Route: 048
  25. ARAVA [Suspect]
     Active Substance: LEFLUNOMIDE
     Route: 048
  26. METHOTREXATE SODIUM. [Suspect]
     Active Substance: METHOTREXATE SODIUM
     Route: 065
  27. METHOTREXATE SODIUM. [Suspect]
     Active Substance: METHOTREXATE SODIUM
     Route: 058
  28. RITUXAN [Suspect]
     Active Substance: RITUXIMAB
     Indication: RHEUMATOID ARTHRITIS
     Route: 042
  29. APO?HYDROXYQUINE [Suspect]
     Active Substance: HYDROXYCHLOROQUINE SULFATE
     Indication: RHEUMATOID ARTHRITIS
     Route: 065
  30. METHOTREXATE. [Suspect]
     Active Substance: METHOTREXATE
     Route: 030
  31. METHOTREXATE. [Suspect]
     Active Substance: METHOTREXATE
     Route: 065
  32. METHOTREXATE. [Suspect]
     Active Substance: METHOTREXATE
     Route: 030
  33. ARAVA [Suspect]
     Active Substance: LEFLUNOMIDE
     Route: 048
  34. ARAVA [Suspect]
     Active Substance: LEFLUNOMIDE
     Route: 048
  35. ARAVA [Suspect]
     Active Substance: LEFLUNOMIDE
     Route: 048
  36. ENBREL [Suspect]
     Active Substance: ETANERCEPT
     Indication: RHEUMATOID ARTHRITIS
     Route: 058
  37. PLAQUENIL [Suspect]
     Active Substance: HYDROXYCHLOROQUINE SULFATE
     Indication: RHEUMATOID ARTHRITIS
     Route: 048
  38. RITUXAN [Suspect]
     Active Substance: RITUXIMAB
     Route: 042
  39. METHOTREXATE. [Suspect]
     Active Substance: METHOTREXATE
     Route: 030
  40. METHOTREXATE. [Suspect]
     Active Substance: METHOTREXATE
     Route: 065
  41. METHOTREXATE. [Suspect]
     Active Substance: METHOTREXATE
     Route: 030
  42. ARAVA [Suspect]
     Active Substance: LEFLUNOMIDE
     Route: 048
  43. ARAVA [Suspect]
     Active Substance: LEFLUNOMIDE
     Route: 048
  44. ENBREL [Suspect]
     Active Substance: ETANERCEPT
     Route: 065
  45. RITUXAN [Suspect]
     Active Substance: RITUXIMAB
     Route: 042
  46. METHOTREXATE. [Suspect]
     Active Substance: METHOTREXATE
     Route: 058
  47. METHOTREXATE. [Suspect]
     Active Substance: METHOTREXATE
     Route: 058
  48. ARAVA [Suspect]
     Active Substance: LEFLUNOMIDE
     Indication: RHEUMATOID ARTHRITIS
     Route: 048
  49. METHOTREXATE SODIUM. [Suspect]
     Active Substance: METHOTREXATE SODIUM
     Indication: RHEUMATOID ARTHRITIS
     Route: 065
  50. METHOTREXATE SODIUM. [Suspect]
     Active Substance: METHOTREXATE SODIUM
     Route: 065
  51. METHOTREXATE. [Suspect]
     Active Substance: METHOTREXATE
     Route: 058
  52. METHOTREXATE. [Suspect]
     Active Substance: METHOTREXATE
     Route: 065

REACTIONS (3)
  - Drug intolerance [Unknown]
  - Drug ineffective [Unknown]
  - Nausea [Unknown]
